FAERS Safety Report 9705800 (Version 2)
Quarter: 2013Q4

REPORT INFORMATION
  Report Type: Spontaneous
  Country: US (occurrence: US)
  Receive Date: 20131122
  Receipt Date: 20131122
  Transmission Date: 20140711
  Serious: Yes (Other)
  Sender: FDA-Public Use
  Company Number: US-GILEAD-2008-0017245

PATIENT
  Age: 78 Year
  Sex: Female

DRUGS (12)
  1. LETAIRIS [Suspect]
     Indication: PULMONARY ARTERIAL HYPERTENSION
     Route: 048
     Dates: start: 20080624, end: 20081002
  2. LETAIRIS [Suspect]
     Route: 048
     Dates: start: 200803, end: 20080624
  3. LETAIRIS [Suspect]
     Route: 048
     Dates: start: 20071102, end: 200803
  4. COUMADIN [Concomitant]
  5. FUROSEMIDE [Concomitant]
  6. LISINOPRIL [Concomitant]
  7. TOPROL XL [Concomitant]
  8. DIGOXIN [Concomitant]
  9. SYNTHROID [Concomitant]
  10. MECLIZINE [Concomitant]
  11. CALTRATE [Concomitant]
  12. POTASSIUM [Concomitant]

REACTIONS (1)
  - Local swelling [Not Recovered/Not Resolved]
